FAERS Safety Report 7962402-6 (Version None)
Quarter: 2011Q4

REPORT INFORMATION
  Report Type: 
  Country: None (occurrence: None)
  Receive Date: 20111207
  Receipt Date: 20111121
  Transmission Date: 20120403
  Serious: Yes (Hospitalization)
  Sender: FDA-Public Use
  Company Number: FR-EISAI INC-E2090-01864-SPO-FR

PATIENT
  Sex: Male

DRUGS (6)
  1. ZONEGRAN [Suspect]
     Dosage: REDUCED (DOSE UNKNOWN)
     Route: 048
     Dates: start: 20100701
  2. PHENOBARBITAL TAB [Concomitant]
     Indication: EPILEPSY
     Dosage: UNKNOWN
     Route: 048
     Dates: start: 19900101
  3. HEPAMYL [Concomitant]
  4. KEPPRA [Concomitant]
     Indication: EPILEPSY
     Route: 048
     Dates: start: 20080101
  5. CIRCADIN [Concomitant]
     Indication: EPILEPSY
     Dosage: 2 MG
     Route: 048
     Dates: start: 20100301
  6. ZONEGRAN [Suspect]
     Indication: EPILEPSY
     Dosage: 350 MG
     Route: 048
     Dates: start: 20100520, end: 20100701

REACTIONS (2)
  - DUODENAL ULCER HAEMORRHAGE [None]
  - DECREASED APPETITE [None]
